FAERS Safety Report 9832188 (Version 1)
Quarter: 2014Q1

REPORT INFORMATION
  Report Type: Spontaneous
  Country: US (occurrence: US)
  Receive Date: 20140121
  Receipt Date: 20140121
  Transmission Date: 20141002
  Serious: No
  Sender: FDA-Public Use
  Company Number: US-009507513-1312USA012585

PATIENT
  Age: 87 Year
  Sex: Male

DRUGS (9)
  1. ZETIA [Suspect]
     Indication: BLOOD CHOLESTEROL
     Dosage: 10 MG, Q3D
     Route: 048
  2. ZETIA [Suspect]
     Dosage: 10 MG, QD
     Route: 048
     Dates: start: 200312
  3. ZETIA [Suspect]
     Dosage: 10 MG, UNK
     Route: 048
  4. ASPIRIN [Concomitant]
  5. DYAZIDE [Concomitant]
  6. UROCIT-K [Concomitant]
  7. FOLIC ACID [Concomitant]
  8. ALLOPURINOL [Concomitant]
  9. OMEGA-3 MARINE TRIGLYCERIDES [Concomitant]

REACTIONS (3)
  - Myalgia [Not Recovered/Not Resolved]
  - Arthralgia [Not Recovered/Not Resolved]
  - Back pain [Not Recovered/Not Resolved]
